FAERS Safety Report 5134580-8 (Version None)
Quarter: 2006Q4

REPORT INFORMATION
  Report Type: 
  Country: None (occurrence: None)
  Receive Date: 20061025
  Receipt Date: 20050623
  Transmission Date: 20070319
  Serious: Yes (Death)
  Sender: FDA-Public Use
  Company Number: US-GLAXOSMITHKLINE-A0563957A

PATIENT
  Age: 17 Year
  Sex: Male

DRUGS (6)
  1. PAXIL CR [Suspect]
     Indication: ANXIETY
     Route: 048
     Dates: start: 20020401
  2. CLONAZEPAM [Concomitant]
     Dates: start: 20020701
  3. VIAGRA [Concomitant]
     Dates: start: 20020601
  4. ZYPREXA [Concomitant]
  5. ESKALITH [Concomitant]
     Dates: end: 20020701
  6. LORAZEPAM [Concomitant]

REACTIONS (11)
  - AGITATION [None]
  - COMPLETED SUICIDE [None]
  - DEPRESSION [None]
  - DISCOMFORT [None]
  - DRUG INEFFECTIVE [None]
  - FATIGUE [None]
  - INJURY ASPHYXIATION [None]
  - PSYCHOMOTOR HYPERACTIVITY [None]
  - SOCIAL AVOIDANT BEHAVIOUR [None]
  - SUICIDAL IDEATION [None]
  - TREMOR [None]
